FAERS Safety Report 7862743-7 (Version None)
Quarter: 2011Q4

REPORT INFORMATION
  Report Type: 
  Country: None (occurrence: None)
  Receive Date: 20111027
  Receipt Date: 20101112
  Transmission Date: 20120403
  Serious: No
  Sender: FDA-Public Use
  Company Number: US-AMGEN-USASP2010004701

PATIENT
  Age: 69 Year
  Sex: Female
  Weight: 210 kg

DRUGS (9)
  1. WELLBUTRIN [Concomitant]
     Dosage: 75 MG, UNK
  2. AZOR                               /00595201/ [Concomitant]
  3. ZOCOR [Concomitant]
     Dosage: 40 MG, UNK
  4. PLAVIX [Concomitant]
     Dosage: 75 MG, UNK
  5. ENBREL [Suspect]
     Indication: PRODUCT USED FOR UNKNOWN INDICATION
     Dosage: 25 MG, Q2WK
  6. METHOTREXATE [Concomitant]
     Dosage: 2.5 MG, UNK
  7. FOLIC ACID [Concomitant]
     Dosage: 1 MG, UNK
  8. CELEXA [Concomitant]
     Dosage: 40 MG, UNK
  9. LEVOTHYROXINE SODIUM [Concomitant]
     Dosage: 112 MG, UNK

REACTIONS (2)
  - HAEMORRHAGE [None]
  - CONTUSION [None]
